FAERS Safety Report 16762132 (Version 4)
Quarter: 2019Q3

REPORT INFORMATION
  Report Type: Report from Study
  Country: CA (occurrence: CA)
  Receive Date: 20190830
  Receipt Date: 20190911
  Transmission Date: 20191005
  Serious: Yes (Hospitalization, Other)
  Sender: FDA-Public Use
  Company Number: PHHY2013CA176646

PATIENT
  Age: 56 Year
  Sex: Male

DRUGS (10)
  1. COVERSYL [Concomitant]
     Active Substance: PERINDOPRIL
     Dosage: 8 MG, QD
     Route: 065
     Dates: start: 20140121
  2. COVERSYL [Concomitant]
     Active Substance: PERINDOPRIL
     Indication: PRODUCT USED FOR UNKNOWN INDICATION
     Dosage: 4 MG, QD (IN THE MORNING)
     Route: 065
  3. SANDOSTATIN [Suspect]
     Active Substance: OCTREOTIDE ACETATE
     Indication: CARCINOID TUMOUR
     Dosage: 50 UG, TID
     Route: 058
     Dates: start: 20130409, end: 20130423
  4. SANDOSTATIN LAR DEPOT [Suspect]
     Active Substance: OCTREOTIDE ACETATE
     Dosage: 40 MG, BIW (EVERY 2 WEEKS)
     Route: 030
  5. MORPHINE [Suspect]
     Active Substance: MORPHINE
     Indication: PRODUCT USED FOR UNKNOWN INDICATION
     Route: 065
  6. SANDOSTATIN LAR DEPOT [Suspect]
     Active Substance: OCTREOTIDE ACETATE
     Dosage: 20MG, QMO (EVERY 4 WEEKS)
     Route: 030
     Dates: start: 20130424
  7. SANDOSTATIN LAR DEPOT [Suspect]
     Active Substance: OCTREOTIDE ACETATE
     Dosage: 40 MG, QW (ONCE A WEEK)
     Route: 030
  8. SANDOSTATIN LAR DEPOT [Suspect]
     Active Substance: OCTREOTIDE ACETATE
     Dosage: 40 MG, BIW (EVERY 2 WEEKS)
     Route: 030
     Dates: start: 20140215
  9. SANDOSTATIN LAR DEPOT [Suspect]
     Active Substance: OCTREOTIDE ACETATE
     Indication: CARCINOID TUMOUR
     Dosage: 2.86 MG, QD
     Route: 030
     Dates: start: 20130319
  10. METOPROLOL. [Suspect]
     Active Substance: METOPROLOL
     Indication: PRODUCT USED FOR UNKNOWN INDICATION
     Dosage: 25 MG, QHS
     Route: 065
     Dates: start: 20160831

REACTIONS (99)
  - Constipation [Unknown]
  - Dyspnoea [Recovered/Resolved]
  - Syncope [Recovering/Resolving]
  - Eye pain [Unknown]
  - Influenza like illness [Not Recovered/Not Resolved]
  - Night sweats [Unknown]
  - Cholelithiasis [Unknown]
  - Asthenia [Recovering/Resolving]
  - Diarrhoea [Recovered/Resolved]
  - Haematochezia [Unknown]
  - Dizziness [Recovering/Resolving]
  - Skin discolouration [Unknown]
  - Sputum discoloured [Recovered/Resolved]
  - Blood pressure fluctuation [Not Recovered/Not Resolved]
  - Chills [Unknown]
  - Hypoaesthesia [Unknown]
  - Musculoskeletal discomfort [Unknown]
  - Cystitis [Unknown]
  - Frequent bowel movements [Unknown]
  - Anorectal discomfort [Unknown]
  - Malaise [Unknown]
  - Nausea [Unknown]
  - Asthma [Recovering/Resolving]
  - Feeling abnormal [Unknown]
  - Blood pressure diastolic increased [Unknown]
  - Paraesthesia [Unknown]
  - Body temperature decreased [Unknown]
  - Biliary colic [Unknown]
  - Weight decreased [Recovering/Resolving]
  - Palpitations [Recovering/Resolving]
  - Arthralgia [Unknown]
  - Flushing [Unknown]
  - Muscle spasms [Unknown]
  - Ear congestion [Unknown]
  - Blood test abnormal [Unknown]
  - Pallor [Unknown]
  - Dysphonia [Unknown]
  - Pharyngitis streptococcal [Recovering/Resolving]
  - Bowel movement irregularity [Recovered/Resolved]
  - Faeces soft [Unknown]
  - Vomiting [Recovered/Resolved]
  - Abdominal pain [Recovering/Resolving]
  - Vomiting [Unknown]
  - Dyspnoea [Not Recovered/Not Resolved]
  - Vision blurred [Unknown]
  - Pain [Unknown]
  - Feeling hot [Unknown]
  - Hypohidrosis [Unknown]
  - Faeces discoloured [Recovering/Resolving]
  - Decreased appetite [Not Recovered/Not Resolved]
  - Fatigue [Unknown]
  - Flatulence [Not Recovered/Not Resolved]
  - Abdominal discomfort [Unknown]
  - Diarrhoea [Recovered/Resolved]
  - Diarrhoea [Unknown]
  - Vomiting [Recovering/Resolving]
  - Dyspnoea [Recovered/Resolved]
  - Cataract [Unknown]
  - Parathyroid hormone-related protein abnormal [Unknown]
  - Stress [Unknown]
  - Urine odour abnormal [Unknown]
  - Cardiac disorder [Unknown]
  - Feeling of body temperature change [Unknown]
  - Electrocardiogram abnormal [Unknown]
  - Cough [Recovering/Resolving]
  - Sciatica [Unknown]
  - Gastroenteritis viral [Unknown]
  - Somnolence [Unknown]
  - Sleep disorder [Unknown]
  - Nocturnal dyspnoea [Unknown]
  - Drug ineffective [Unknown]
  - Inappropriate schedule of product administration [Unknown]
  - Blood pressure increased [Not Recovered/Not Resolved]
  - Dehydration [Recovering/Resolving]
  - Cold sweat [Not Recovered/Not Resolved]
  - Hot flush [Not Recovered/Not Resolved]
  - Pain [Recovered/Resolved]
  - Poor quality sleep [Unknown]
  - Prostatic specific antigen increased [Unknown]
  - Prostatomegaly [Unknown]
  - Feeling cold [Not Recovered/Not Resolved]
  - Asthenopia [Unknown]
  - Bronchitis [Unknown]
  - Tremor [Unknown]
  - Headache [Recovered/Resolved]
  - Heart rate decreased [Unknown]
  - Chest pain [Unknown]
  - Diabetes mellitus [Unknown]
  - Tinnitus [Unknown]
  - Photophobia [Unknown]
  - Excessive cerumen production [Unknown]
  - Hypoaesthesia oral [Unknown]
  - Hyperhidrosis [Not Recovered/Not Resolved]
  - Dysphagia [Unknown]
  - Pyrexia [Recovered/Resolved]
  - Scan gallium abnormal [Unknown]
  - Dyspnoea [Recovered/Resolved]
  - Abdominal distension [Unknown]
  - Chronic obstructive pulmonary disease [Recovered/Resolved]

NARRATIVE: CASE EVENT DATE: 201305
